FAERS Safety Report 9056167 (Version 8)
Quarter: 2014Q1

REPORT INFORMATION
  Report Type: Spontaneous
  Country: US (occurrence: US)
  Receive Date: 20130205
  Receipt Date: 20140218
  Transmission Date: 20141002
  Serious: Yes (Hospitalization, Other)
  Sender: FDA-Public Use
  Company Number: US-009507513-1302USA000346

PATIENT
  Sex: Female
  Weight: 108.84 kg

DRUGS (11)
  1. FOSAMAX [Suspect]
     Indication: OSTEOPOROSIS
     Dosage: 70 MG, QW
     Route: 048
     Dates: start: 200406
  2. ALENDRONATE SODIUM [Suspect]
     Indication: OSTEOPOROSIS
     Dosage: 70 MG, QW
     Route: 048
     Dates: start: 20080428
  3. SYNTHROID [Concomitant]
     Indication: HYPOTHYROIDISM
     Dosage: UNK
     Dates: start: 1993
  4. QUININE SULFATE [Concomitant]
     Indication: MUSCLE SPASMS
     Dosage: UNK
     Dates: start: 1986, end: 200612
  5. MICARDIS [Concomitant]
     Indication: FLUID RETENTION
     Dosage: UNK
     Dates: start: 2002, end: 200709
  6. DITROPAN XL [Concomitant]
     Indication: POLLAKIURIA
     Dosage: UNK
     Dates: start: 2001
  7. LASIX (FUROSEMIDE) [Concomitant]
     Indication: FLUID RETENTION
     Dosage: 40-160 MG QD
     Route: 048
  8. METHOCARBAMOL [Concomitant]
     Indication: MUSCLE SPASMS
     Dosage: 750-1500MG QID PRN
     Route: 048
  9. METHOCARBAMOL [Concomitant]
     Indication: MUSCLE SPASMS
  10. KLONOPIN [Concomitant]
     Indication: MUSCLE SPASMS
     Dosage: 0.5-1 MG PO HS
     Route: 048
     Dates: start: 20101004
  11. FLEXERIL [Concomitant]
     Indication: MUSCLE SPASMS
     Dosage: UNK
     Dates: start: 20101004

REACTIONS (94)
  - Femur fracture [Unknown]
  - Open reduction of fracture [Unknown]
  - Knee arthroplasty [Unknown]
  - Haematoma [Unknown]
  - Haematoma evacuation [Unknown]
  - Shoulder arthroplasty [Unknown]
  - Hip arthroplasty [Unknown]
  - Knee arthroplasty [Unknown]
  - Post procedural pulmonary embolism [Unknown]
  - Pulmonary embolism [Unknown]
  - Deafness [Unknown]
  - Cholecystitis acute [Unknown]
  - Biliary drainage [Unknown]
  - Cholecystectomy [Unknown]
  - Pulmonary embolism [Unknown]
  - Depression [Not Recovered/Not Resolved]
  - Anxiety [Not Recovered/Not Resolved]
  - Insomnia [Not Recovered/Not Resolved]
  - Vitamin D deficiency [Unknown]
  - Head injury [Unknown]
  - Concussion [Unknown]
  - Hypertension [Unknown]
  - Hypercholesterolaemia [Unknown]
  - Cardiac disorder [Unknown]
  - Arthritis [Unknown]
  - Lower limb fracture [Unknown]
  - Diverticulitis [Unknown]
  - Osteoarthritis [Unknown]
  - Rotator cuff syndrome [Unknown]
  - Osteopenia [Unknown]
  - Pain [Unknown]
  - Dyspnoea [Unknown]
  - Fall [Unknown]
  - Contusion [Unknown]
  - Arteritis [Unknown]
  - Sleep disorder [Unknown]
  - Irritable bowel syndrome [Unknown]
  - Hiatus hernia [Unknown]
  - Vena cava filter insertion [Unknown]
  - Cardiac failure congestive [Unknown]
  - Contusion [Unknown]
  - Fatigue [Unknown]
  - Cardiovascular deconditioning [Unknown]
  - Vertebrobasilar insufficiency [Unknown]
  - Cardiac murmur [Unknown]
  - Urinary tract infection [Unknown]
  - Deep vein thrombosis [Unknown]
  - Osteoarthritis [Unknown]
  - Musculoskeletal disorder [Not Recovered/Not Resolved]
  - Localised infection [Unknown]
  - Gout [Unknown]
  - Coronary artery disease [Unknown]
  - Bronchitis [Unknown]
  - Device failure [Unknown]
  - Device failure [Unknown]
  - Hypoaesthesia [Unknown]
  - Stress [Unknown]
  - Palpitations [Unknown]
  - Anal haemorrhage [Unknown]
  - Dysuria [Unknown]
  - Gait disturbance [Unknown]
  - Urinary tract infection [Unknown]
  - Bladder prolapse [Unknown]
  - Bronchitis [Unknown]
  - Cough [Unknown]
  - Restless legs syndrome [Unknown]
  - Arrhythmia [Unknown]
  - Diverticulum [Unknown]
  - Umbilical hernia repair [Unknown]
  - Adenotonsillectomy [Unknown]
  - Contusion [Unknown]
  - Excoriation [Unknown]
  - Tachycardia [Recovered/Resolved]
  - International normalised ratio increased [Unknown]
  - Laceration [Unknown]
  - Treatment failure [Unknown]
  - Asthenia [Unknown]
  - Arthralgia [Not Recovered/Not Resolved]
  - Musculoskeletal pain [Unknown]
  - Drug ineffective [Unknown]
  - Muscle spasms [Unknown]
  - Drug ineffective [Unknown]
  - Pain in extremity [Unknown]
  - Oedema peripheral [Unknown]
  - Erythema [Unknown]
  - Musculoskeletal discomfort [Unknown]
  - Abdominal pain [Unknown]
  - Diarrhoea [Unknown]
  - Vomiting [Unknown]
  - Constipation [Unknown]
  - Abdominal pain [Unknown]
  - Musculoskeletal pain [Unknown]
  - Arthralgia [Unknown]
  - Gastrooesophageal reflux disease [Unknown]
